FAERS Safety Report 23703719 (Version 2)
Quarter: 2024Q2

REPORT INFORMATION
  Report Type: Spontaneous
  Country: CH (occurrence: CH)
  Receive Date: 20240403
  Receipt Date: 20240415
  Transmission Date: 20240716
  Serious: Yes (Death, Hospitalization, Other)
  Sender: FDA-Public Use
  Company Number: None

PATIENT
  Age: 70 Year
  Sex: Male

DRUGS (11)
  1. CLARITHROMYCIN [Suspect]
     Active Substance: CLARITHROMYCIN
     Indication: Pneumonitis
     Dosage: 500 MILLIGRAM, BID (EVERY 12 HOURS)
     Route: 042
     Dates: start: 20240208, end: 20240213
  2. PIPERACILLIN SODIUM\TAZOBACTAM SODIUM [Suspect]
     Active Substance: PIPERACILLIN SODIUM\TAZOBACTAM SODIUM
     Indication: Pneumonitis
     Dosage: 4.5 GRAM, Q8H (EVERY 8 HOURS)
     Route: 042
     Dates: start: 20240208, end: 20240213
  3. MEROPENEM [Suspect]
     Active Substance: MEROPENEM
     Indication: Pneumonia klebsiella
     Dosage: 2 GRAM, BID (EVERY 12 HOURS)
     Route: 042
     Dates: start: 20240223, end: 20240225
  4. MEROPENEM [Suspect]
     Active Substance: MEROPENEM
     Dosage: 2 GRAM, Q8H (EVERY 8 HOURS)
     Route: 042
     Dates: start: 20240226, end: 20240304
  5. AMOXICILLIN\CLAVULANATE POTASSIUM [Suspect]
     Active Substance: AMOXICILLIN\CLAVULANATE POTASSIUM
     Indication: Product used for unknown indication
     Dosage: 1200 MILLIGRAM, TID (THRICE DAILY)
     Route: 042
     Dates: start: 20240206, end: 20240207
  6. AMOXICILLIN\CLAVULANATE POTASSIUM [Suspect]
     Active Substance: AMOXICILLIN\CLAVULANATE POTASSIUM
     Dosage: UNK
     Route: 042
     Dates: start: 20240208
  7. CANDESARTAN CILEXETIL AND HYDROCHLOROTHIAZIDE [Concomitant]
     Active Substance: CANDESARTAN CILEXETIL\HYDROCHLOROTHIAZIDE
     Dosage: UNK, QD (ONCE DAILY)
     Route: 048
  8. TARKA [Concomitant]
     Active Substance: TRANDOLAPRIL\VERAPAMIL HYDROCHLORIDE
     Dosage: UNK, QD (ONCE DAILY)
     Route: 048
  9. ROSUVASTATIN CALCIUM [Concomitant]
     Active Substance: ROSUVASTATIN CALCIUM
     Dosage: 5 MILLIGRAM, QD (ONCE DAILY)
     Route: 048
  10. EMPAGLIFLOZIN\METFORMIN HYDROCHLORIDE [Concomitant]
     Active Substance: EMPAGLIFLOZIN\METFORMIN HYDROCHLORIDE
     Dosage: UNK, QD (ONCE DAILY)
     Route: 048
  11. LINAGLIPTIN [Concomitant]
     Active Substance: LINAGLIPTIN
     Dosage: 5 MILLIGRAM, QD (ONCE DAILY)
     Route: 048

REACTIONS (1)
  - Drug reaction with eosinophilia and systemic symptoms [Fatal]

NARRATIVE: CASE EVENT DATE: 20240219
